FAERS Safety Report 5794988-4 (Version None)
Quarter: 2008Q2

REPORT INFORMATION
  Report Type: 
  Country: None (occurrence: None)
  Receive Date: 20080630
  Receipt Date: 20080626
  Transmission Date: 20081010
  Serious: Yes (Hospitalization)
  Sender: FDA-Public Use
  Company Number: US-GILEAD-2008-0016314

PATIENT
  Sex: Male

DRUGS (13)
  1. LETAIRIS [Suspect]
  2. ALEVE [Concomitant]
     Route: 048
  3. ZYRTEC [Concomitant]
     Route: 048
  4. LISINOPRIL [Concomitant]
     Route: 048
  5. PLAVIX [Concomitant]
  6. VITAMIN CAP [Concomitant]
  7. ENABLEX [Concomitant]
  8. SYNTHROID [Concomitant]
  9. COREG [Concomitant]
  10. ZOLOFT [Concomitant]
  11. LANTUS [Concomitant]
  12. NOVOLOG [Concomitant]
  13. SENOKOT [Concomitant]

REACTIONS (3)
  - DYSPNOEA [None]
  - DYSURIA [None]
  - OEDEMA [None]
